FAERS Safety Report 5678648-6 (Version None)
Quarter: 2008Q1

REPORT INFORMATION
  Report Type: 
  Country: None (occurrence: None)
  Receive Date: 20080325
  Receipt Date: 20080311
  Transmission Date: 20080703
  Serious: Yes (Hospitalization, Other)
  Sender: FDA-Public Use
  Company Number: US-ELI_LILLY_AND_COMPANY-US200803001358

PATIENT
  Sex: Female
  Weight: 56.236 kg

DRUGS (9)
  1. GEMZAR [Suspect]
     Indication: BREAST CANCER METASTATIC
     Dosage: UNK, OTHER
     Dates: start: 20080101
  2. LISINOPRIL [Concomitant]
     Indication: HYPERTENSION
     Dosage: 40 MG, DAILY (1/D)
     Dates: start: 20010101
  3. MORPHINE [Concomitant]
     Dates: end: 20080125
  4. ACIPHEX [Concomitant]
     Indication: GASTROOESOPHAGEAL REFLUX DISEASE
     Dates: start: 20070501
  5. COMPAZINE [Concomitant]
     Indication: NAUSEA
     Dosage: 10 MG, AS NEEDED
     Dates: start: 20070821
  6. MARINOL [Concomitant]
     Indication: DECREASED APPETITE
     Dosage: 2.5 MG, UNK
     Dates: start: 20070918
  7. KYTRIL [Concomitant]
     Indication: NAUSEA
     Dates: start: 20070918
  8. LEVAQUIN [Concomitant]
     Dosage: 500 MG, UNK
  9. LORAZEPAM [Concomitant]
     Dosage: 0.5 MG, UNK

REACTIONS (21)
  - ALANINE AMINOTRANSFERASE INCREASED [None]
  - ANAEMIA [None]
  - ASPARTATE AMINOTRANSFERASE INCREASED [None]
  - BLOOD ALKALINE PHOSPHATASE INCREASED [None]
  - CONFUSIONAL STATE [None]
  - COORDINATION ABNORMAL [None]
  - DYSPNOEA [None]
  - HEPATIC ENZYME ABNORMAL [None]
  - LEUKOCYTOSIS [None]
  - LIPASE INCREASED [None]
  - MALIGNANT NEOPLASM PROGRESSION [None]
  - MALNUTRITION [None]
  - METASTASES TO GASTROINTESTINAL TRACT [None]
  - NAUSEA [None]
  - NEUTROPENIA [None]
  - OEDEMA PERIPHERAL [None]
  - SOMNOLENCE [None]
  - THROMBOCYTOPENIA [None]
  - ULCER [None]
  - URINARY RETENTION [None]
  - VOMITING [None]
